FAERS Safety Report 14762456 (Version 2)
Quarter: 2018Q3

REPORT INFORMATION
  Report Type: Report from Study
  Country: None (occurrence: US)
  Receive Date: 20180416
  Receipt Date: 20180713
  Transmission Date: 20181010
  Serious: Yes (Hospitalization, Other)
  Sender: FDA-Public Use
  Company Number: US-ABBVIE-17K-163-2096717-00

PATIENT
  Sex: Female

DRUGS (3)
  1. HUMIRA [Suspect]
     Active Substance: ADALIMUMAB
     Route: 058
     Dates: start: 2017, end: 201801
  2. HUMIRA [Suspect]
     Active Substance: ADALIMUMAB
     Route: 058
     Dates: start: 2018
  3. HUMIRA [Suspect]
     Active Substance: ADALIMUMAB
     Indication: PSORIATIC ARTHROPATHY
     Route: 058
     Dates: start: 20170629, end: 201708

REACTIONS (23)
  - Chills [Unknown]
  - Post procedural complication [Not Recovered/Not Resolved]
  - Nerve compression [Not Recovered/Not Resolved]
  - Night sweats [Unknown]
  - Hyperhidrosis [Unknown]
  - Nausea [Recovering/Resolving]
  - Bone cyst [Not Recovered/Not Resolved]
  - Joint swelling [Recovering/Resolving]
  - Hypoaesthesia [Not Recovered/Not Resolved]
  - Hot flush [Recovering/Resolving]
  - Nerve block [Unknown]
  - Fatigue [Not Recovered/Not Resolved]
  - Rash macular [Recovering/Resolving]
  - Nasopharyngitis [Not Recovered/Not Resolved]
  - Arthralgia [Not Recovered/Not Resolved]
  - Basal cell carcinoma [Unknown]
  - Myalgia [Recovering/Resolving]
  - Paraesthesia [Not Recovered/Not Resolved]
  - Loss of personal independence in daily activities [Unknown]
  - Joint stiffness [Recovering/Resolving]
  - Gait disturbance [Recovering/Resolving]
  - Headache [Unknown]
  - Injection site pain [Unknown]

NARRATIVE: CASE EVENT DATE: 2017
